FAERS Safety Report 5003835-X (Version None)
Quarter: 2006Q2

REPORT INFORMATION
  Report Type: 
  Country: None (occurrence: None)
  Receive Date: 20060515
  Receipt Date: 20060505
  Transmission Date: 20061013
  Serious: Yes (Other)
  Sender: FDA-Public Use
  Company Number: CHNY2006DE01466

PATIENT
  Age: 42 Year
  Sex: Female

DRUGS (1)
  1. TAVEGIL [Suspect]
     Indication: ECZEMA
     Dosage: 2 MG, ONCE/SINGLE, INTRAVENOUS
     Route: 042
     Dates: start: 20060504, end: 20060504

REACTIONS (10)
  - CIRCULATORY COLLAPSE [None]
  - FEELING HOT AND COLD [None]
  - HEADACHE [None]
  - HYPERHIDROSIS [None]
  - HYPOTENSION [None]
  - LOSS OF CONSCIOUSNESS [None]
  - NAUSEA [None]
  - PARAESTHESIA [None]
  - SYNCOPE [None]
  - VOMITING [None]
